FAERS Safety Report 6209853-8 (Version None)
Quarter: 2009Q2

REPORT INFORMATION
  Report Type: 
  Country: None (occurrence: None)
  Receive Date: 20090528
  Receipt Date: 20090528
  Transmission Date: 20091009
  Serious: Yes (Hospitalization)
  Sender: FDA-Public Use
  Company Number: None

PATIENT
  Sex: Male
  Weight: 88.18 kg

DRUGS (12)
  1. CETUXIMAB 2MG/ML 50ML VIALS BMS [Suspect]
     Indication: BLADDER CANCER
     Dosage: 510 MG WEEKLY 041
     Dates: start: 20090429, end: 20090506
  2. CETUXIMAB 2MG/ML 50ML VIALS BMS [Suspect]
     Indication: METASTASIS
     Dosage: 510 MG WEEKLY 041
     Dates: start: 20090429, end: 20090506
  3. PACLITAXEL [Suspect]
     Dosage: 613.2 MG WEEKLY 041
     Dates: start: 20090429, end: 20090506
  4. ASPIRIN [Concomitant]
  5. COLACE [Concomitant]
  6. CRESTOR [Concomitant]
  7. DIOVAN [Concomitant]
  8. HYDROCHLOROTHIAZIDE [Concomitant]
  9. NYSTATIN [Concomitant]
  10. LOVAZA [Concomitant]
  11. TERAZOSIN HCL [Concomitant]
  12. TOPROL-XL [Concomitant]

REACTIONS (4)
  - GAIT DISTURBANCE [None]
  - MENTAL STATUS CHANGES [None]
  - METASTASES TO CENTRAL NERVOUS SYSTEM [None]
  - SPEECH DISORDER [None]
